FAERS Safety Report 8490578-3 (Version None)
Quarter: 2012Q3

REPORT INFORMATION
  Report Type: 
  Country: None (occurrence: None)
  Receive Date: 20120705
  Receipt Date: 20120625
  Transmission Date: 20120928
  Serious: Yes (Hospitalization)
  Sender: FDA-Public Use
  Company Number: CA-ABBOTT-12P-028-0940061-00

PATIENT
  Sex: Female

DRUGS (1)
  1. HUMIRA [Suspect]
     Indication: RHEUMATOID ARTHRITIS
     Route: 058
     Dates: start: 20090119

REACTIONS (7)
  - FLANK PAIN [None]
  - NECK PAIN [None]
  - PRODUCTIVE COUGH [None]
  - SPINAL PAIN [None]
  - HYPERTENSION [None]
  - SPUTUM DISCOLOURED [None]
  - BACK PAIN [None]
